FAERS Safety Report 19393302 (Version 4)
Quarter: 2021Q3

REPORT INFORMATION
  Report Type: Report from Study
  Country: US (occurrence: US)
  Receive Date: 20210609
  Receipt Date: 20210828
  Transmission Date: 20211014
  Serious: No
  Sender: FDA-Public Use
  Company Number: NVSC2021US124266

PATIENT
  Age: 64 Year
  Sex: Female

DRUGS (3)
  1. COSENTYX [Suspect]
     Active Substance: SECUKINUMAB
     Indication: PSORIASIS
     Dosage: 300 MG,QMO
     Route: 058
  2. COSENTYX [Suspect]
     Active Substance: SECUKINUMAB
     Dosage: 300 MG/KG, QMO
     Route: 058
     Dates: start: 20210511, end: 20210618
  3. COSENTYX [Suspect]
     Active Substance: SECUKINUMAB
     Dosage: 300 MG/KG, QMO
     Route: 058
     Dates: start: 20210511, end: 20210601

REACTIONS (7)
  - Sinus congestion [Unknown]
  - Ear discomfort [Recovered/Resolved]
  - Cold sweat [Unknown]
  - Cough [Unknown]
  - Infection [Unknown]
  - Hypersensitivity [Unknown]
  - Throat irritation [Unknown]

NARRATIVE: CASE EVENT DATE: 20210519
